FAERS Safety Report 6758062-2 (Version None)
Quarter: 2010Q2

REPORT INFORMATION
  Report Type: 
  Country: None (occurrence: None)
  Receive Date: 20100607
  Receipt Date: 20100527
  Transmission Date: 20101027
  Serious: Yes (Hospitalization)
  Sender: FDA-Public Use
  Company Number: US-RB-009744-10

PATIENT
  Sex: Male

DRUGS (1)
  1. SUBOXONE [Suspect]
     Indication: DRUG DEPENDENCE
     Route: 060
     Dates: start: 20060522

REACTIONS (10)
  - ASPIRATION [None]
  - CONSTIPATION [None]
  - DRUG WITHDRAWAL SYNDROME [None]
  - GYNAECOMASTIA [None]
  - LICHEN SCLEROSUS [None]
  - NAUSEA [None]
  - SLEEP APNOEA SYNDROME [None]
  - SOMNOLENCE [None]
  - URINARY RETENTION [None]
  - URINARY TRACT INFECTION [None]
